FAERS Safety Report 7496431-6 (Version None)
Quarter: 2011Q2

REPORT INFORMATION
  Report Type: 
  Country: None (occurrence: None)
  Receive Date: 20110523
  Receipt Date: 20110509
  Transmission Date: 20111010
  Serious: Yes (Other)
  Sender: FDA-Public Use
  Company Number: PHEH2011US00452

PATIENT
  Sex: Male

DRUGS (2)
  1. AREDIA [Suspect]
  2. THALIDOMIDE [Suspect]

REACTIONS (21)
  - INFECTION [None]
  - MYALGIA [None]
  - FEBRILE NEUTROPENIA [None]
  - DYSPNOEA [None]
  - SKIN LESION [None]
  - OBESITY [None]
  - RHINITIS ALLERGIC [None]
  - ABDOMINAL PAIN [None]
  - OSTEOPENIA [None]
  - MUCOSAL INFLAMMATION [None]
  - HERPES ZOSTER [None]
  - DIARRHOEA [None]
  - ANXIETY [None]
  - BENIGN PROSTATIC HYPERPLASIA [None]
  - BACK PAIN [None]
  - OEDEMA PERIPHERAL [None]
  - BUNDLE BRANCH BLOCK LEFT [None]
  - SLEEP DISORDER [None]
  - CHRONIC SINUSITIS [None]
  - MUSCLE TWITCHING [None]
  - AORTIC VALVE INCOMPETENCE [None]
